FAERS Safety Report 7935600-5 (Version None)
Quarter: 2011Q4

REPORT INFORMATION
  Report Type: 
  Country: None (occurrence: None)
  Receive Date: 20111123
  Receipt Date: 20111117
  Transmission Date: 20120403
  Serious: Yes (Hospitalization)
  Sender: FDA-Public Use
  Company Number: US-SP-2011-11321

PATIENT
  Age: 80 Year
  Sex: Male

DRUGS (1)
  1. TICE BCG [Suspect]
     Indication: BLADDER CANCER
     Route: 043

REACTIONS (11)
  - DYSURIA [None]
  - LEUKOPENIA [None]
  - LIVER FUNCTION TEST ABNORMAL [None]
  - HAEMATURIA [None]
  - GRANULOMATOUS LIVER DISEASE [None]
  - PYREXIA [None]
  - BONE MARROW GRANULOMA [None]
  - NIGHT SWEATS [None]
  - CHILLS [None]
  - BOVINE TUBERCULOSIS [None]
  - PANCYTOPENIA [None]
